FAERS Safety Report 4659519-0 (Version None)
Quarter: 2005Q2

REPORT INFORMATION
  Report Type: 
  Country: None (occurrence: None)
  Receive Date: 20050511
  Receipt Date: 20050503
  Transmission Date: 20051028
  Serious: Yes (Hospitalization)
  Sender: FDA-Public Use
  Company Number: GR-MERCK-0505GRC00002

PATIENT
  Age: 60 Year
  Sex: Female

DRUGS (3)
  1. SINGULAIR [Suspect]
     Indication: TRACHEITIS
     Route: 048
     Dates: start: 20050401, end: 20050401
  2. BETAMETHASONE ACETATE AND BETAMETHASONE SODIUM PHOSPHATE [Concomitant]
     Indication: TRACHEITIS
     Route: 051
     Dates: start: 20050401, end: 20050401
  3. HYDROCHLOROTHIAZIDE AND QUINAPRIL HYDROCHLORIDE [Concomitant]
     Indication: HYPERTENSION
     Route: 048

REACTIONS (2)
  - EPIGLOTTITIS [None]
  - HYPERSENSITIVITY [None]
